FAERS Safety Report 18103780 (Version 1)
Quarter: 2020Q3

REPORT INFORMATION
  Report Type: Spontaneous
  Country: US (occurrence: US)
  Receive Date: 20200731
  Receipt Date: 20200731
  Transmission Date: 20201103
  Serious: Yes (Death)
  Sender: FDA-Public Use
  Company Number: None

PATIENT
  Age: 78 Year
  Sex: Male
  Weight: 72.57 kg

DRUGS (2)
  1. VISTOGARD [Suspect]
     Active Substance: URIDINE TRIACETATE
  2. CAPECITABINE. [Suspect]
     Active Substance: CAPECITABINE

REACTIONS (6)
  - Oral mucosal blistering [None]
  - Mucosal inflammation [None]
  - Vomiting [None]
  - Toxicity to various agents [None]
  - Diarrhoea [None]
  - Neutropenia [None]

NARRATIVE: CASE EVENT DATE: 20181123
